FAERS Safety Report 20083882 (Version 1)
Quarter: 2021Q4

REPORT INFORMATION
  Report Type: Spontaneous
  Country: US (occurrence: US)
  Receive Date: 20211118
  Receipt Date: 20211118
  Transmission Date: 20220303
  Serious: No
  Sender: FDA-Public Use
  Company Number: US-SA-SAC20211110000132

PATIENT
  Sex: Female

DRUGS (16)
  1. DUPIXENT [Suspect]
     Active Substance: DUPILUMAB
     Indication: Eczema
     Dosage: 300 MG, QOW
     Route: 058
  2. COVID-19 VACCINE NOS [Suspect]
     Active Substance: COVID-19 VACCINE NOS
     Indication: Immunisation
  3. ATIVAN [Concomitant]
     Active Substance: LORAZEPAM
     Dosage: UNK
  4. CLOBETASOL PROPIONATE [Concomitant]
     Active Substance: CLOBETASOL PROPIONATE
  5. COLACE [Concomitant]
     Active Substance: DOCUSATE SODIUM
  6. DOXEPIN HCL [Concomitant]
     Active Substance: DOXEPIN HYDROCHLORIDE
  7. ELIDEL [Concomitant]
     Active Substance: PIMECROLIMUS
  8. KETOCONAZOLE [Concomitant]
     Active Substance: KETOCONAZOLE
  9. MOBIC [Concomitant]
     Active Substance: MELOXICAM
  10. QUINAPRIL [Concomitant]
     Active Substance: QUINAPRIL
  11. TRESIBA [Concomitant]
     Active Substance: INSULIN DEGLUDEC
  12. TYLENOL [Concomitant]
     Active Substance: ACETAMINOPHEN
  13. DICLOFENAC SODIUM [Concomitant]
     Active Substance: DICLOFENAC SODIUM
  14. ZOLOFT [Concomitant]
     Active Substance: SERTRALINE HYDROCHLORIDE
  15. HYDROCORTISONE [Concomitant]
     Active Substance: HYDROCORTISONE
  16. MAGNESIUM [Concomitant]
     Active Substance: MAGNESIUM

REACTIONS (7)
  - Pruritus [Unknown]
  - Dry mouth [Unknown]
  - Oral pain [Unknown]
  - Dry skin [Unknown]
  - Herpes virus infection [Unknown]
  - Therapeutic response shortened [Unknown]
  - Product use in unapproved indication [Unknown]
